FAERS Safety Report 14958558 (Version 1)
Quarter: 2018Q2

REPORT INFORMATION
  Report Type: Spontaneous
  Country: US (occurrence: US)
  Receive Date: 20180509
  Receipt Date: 20180509
  Transmission Date: 20180711
  Serious: Yes (Hospitalization)
  Sender: FDA-Public Use
  Company Number: None

PATIENT
  Age: 42 Year
  Sex: Female

DRUGS (1)
  1. IBRANCE [Suspect]
     Active Substance: PALBOCICLIB
     Indication: NEOPLASM MALIGNANT
     Dosage: 1 CQP (125MG) QD X 21 PO
     Route: 048
     Dates: start: 20180425

REACTIONS (3)
  - White blood cell count decreased [None]
  - Nasopharyngitis [None]
  - Pneumonia [None]

NARRATIVE: CASE EVENT DATE: 20180505
